FAERS Safety Report 5533282-3 (Version None)
Quarter: 2007Q4

REPORT INFORMATION
  Report Type: 
  Country: None (occurrence: None)
  Receive Date: 20071130
  Receipt Date: 20071130
  Transmission Date: 20080405
  Serious: Yes (Other)
  Sender: FDA-Public Use
  Company Number: None

PATIENT
  Sex: Female
  Weight: 82.1011 kg

DRUGS (1)
  1. LISINOPRIL [Suspect]
     Indication: HYPERTENSION
     Dosage: 5 MG  ONE DAILY
     Dates: start: 20070401, end: 20071106

REACTIONS (3)
  - ARRHYTHMIA [None]
  - ASTHENIA [None]
  - TACHYCARDIA [None]
